FAERS Safety Report 9649247 (Version 1)
Quarter: 2013Q4

REPORT INFORMATION
  Report Type: Spontaneous
  Country: US (occurrence: US)
  Receive Date: 20131028
  Receipt Date: 20131028
  Transmission Date: 20140711
  Serious: Yes (Other)
  Sender: FDA-Public Use
  Company Number: US-GLAXOSMITHKLINE-A1046715A

PATIENT
  Age: 54 Year
  Sex: Male

DRUGS (8)
  1. COREG CR [Suspect]
     Indication: CARDIAC FAILURE CONGESTIVE
     Dosage: 20MG SINGLE DOSE
     Route: 048
  2. COREG [Suspect]
     Indication: CARDIAC FAILURE CONGESTIVE
     Route: 065
     Dates: start: 201308
  3. BENICAR [Concomitant]
     Indication: PRODUCT USED FOR UNKNOWN INDICATION
     Route: 065
  4. BACTRIM [Concomitant]
  5. CLINDAMYCIN [Concomitant]
  6. MORPHINE [Concomitant]
  7. NORCO [Concomitant]
  8. INSULIN [Concomitant]

REACTIONS (4)
  - Cardiac arrest [Recovered/Resolved]
  - Heart rate decreased [Recovered/Resolved]
  - Extrasystoles [Recovered/Resolved]
  - Expired drug administered [Unknown]
